FAERS Safety Report 8485915-X (Version None)
Quarter: 2012Q3

REPORT INFORMATION
  Report Type: 
  Country: None (occurrence: None)
  Receive Date: 20120703
  Receipt Date: 20120626
  Transmission Date: 20120928
  Serious: Yes (Other)
  Sender: FDA-Public Use
  Company Number: US-ABBOTT-12P-163-0936996-00

PATIENT
  Sex: Female
  Weight: 140.74 kg

DRUGS (3)
  1. HUMIRA [Suspect]
  2. HUMIRA [Suspect]
     Indication: PSORIASIS
     Dosage: LOADING DOSE
     Dates: start: 20120501, end: 20120514
  3. OTHER MEDICATIONS [Concomitant]
     Indication: PRODUCT USED FOR UNKNOWN INDICATION

REACTIONS (9)
  - CYST RUPTURE [None]
  - ABDOMINAL PAIN [None]
  - HIDRADENITIS [None]
  - LOCAL SWELLING [None]
  - HAEMORRHAGE [None]
  - PAIN [None]
  - TOOTHACHE [None]
  - GAIT DISTURBANCE [None]
  - FEELING HOT [None]
